FAERS Safety Report 4558499-6 (Version None)
Quarter: 2005Q1

REPORT INFORMATION
  Report Type: 
  Country: None (occurrence: None)
  Receive Date: 20050121
  Receipt Date: 20050118
  Transmission Date: 20050727
  Serious: Yes (Hospitalization)
  Sender: FDA-Public Use
  Company Number: AU-MERCK-0501AUS00115

PATIENT
  Age: 44 Year
  Sex: Female

DRUGS (6)
  1. VIOXX [Suspect]
     Indication: LIMB DISCOMFORT
     Route: 048
     Dates: start: 20010101
  2. VIOXX [Suspect]
     Route: 048
  3. HORMONAL CONTRACEPTIVES (UNSPECIFIED) [Concomitant]
     Route: 065
     Dates: start: 20000101, end: 20000101
  4. [THERAPY UNSPECIFIED] [Concomitant]
     Route: 065
     Dates: start: 20010101
  5. [THERAPY UNSPECIFIED] [Concomitant]
     Route: 065
     Dates: end: 20000101
  6. WARFARIN [Concomitant]
     Route: 065
     Dates: start: 20010101

REACTIONS (2)
  - CEREBROVASCULAR ACCIDENT [None]
  - PAIN IN EXTREMITY [None]
